FAERS Safety Report 7864350-9 (Version None)
Quarter: 2011Q4

REPORT INFORMATION
  Report Type: 
  Country: None (occurrence: None)
  Receive Date: 20111028
  Receipt Date: 20110104
  Transmission Date: 20120403
  Serious: No
  Sender: FDA-Public Use
  Company Number: US-ASTRAZENECA-2011SE00476

PATIENT
  Age: 75 Year
  Sex: Female
  Weight: 82.6 kg

DRUGS (2)
  1. LIPITOR [Concomitant]
     Indication: HYPERCHOLESTEROLAEMIA
  2. TENORETIC 100 [Suspect]
     Indication: HYPERTENSION
     Dosage: 50+25 MG ONCE DAILY
     Route: 048
     Dates: start: 20060101, end: 20110103

REACTIONS (1)
  - GOUT [None]
